FAERS Safety Report 18151091 (Version 2)
Quarter: 2020Q3

REPORT INFORMATION
  Report Type: Spontaneous
  Country: US (occurrence: US)
  Receive Date: 20200814
  Receipt Date: 20200923
  Transmission Date: 20201103
  Serious: No
  Sender: FDA-Public Use
  Company Number: US-PFIZER INC-2020311994

PATIENT
  Age: 61 Year
  Sex: Female

DRUGS (1)
  1. IBRANCE [Suspect]
     Active Substance: PALBOCICLIB
     Indication: BREAST CANCER
     Dosage: 125 MG, CYCLIC (ONCE A DAY X 21 DAYS EACH 28 DAYS)
     Dates: start: 20200305, end: 2020

REACTIONS (3)
  - Fatigue [Unknown]
  - Constipation [Unknown]
  - Lethargy [Unknown]

NARRATIVE: CASE EVENT DATE: 2020
